FAERS Safety Report 24275694 (Version 1)
Quarter: 2024Q3

REPORT INFORMATION
  Report Type: Spontaneous
  Country: DE (occurrence: DE)
  Receive Date: 20240903
  Receipt Date: 20240903
  Transmission Date: 20241017
  Serious: Yes (Other)
  Sender: AUROBINDO
  Company Number: DE-002147023-NVSC2022DE148634

PATIENT
  Age: 55 Year
  Sex: Female

DRUGS (4)
  1. DEFERASIROX [Suspect]
     Active Substance: DEFERASIROX
     Indication: Iron overload
     Dosage: 17 MILLIGRAM/KILOGRAM, ONCE A DAY
     Route: 065
  2. DEFERASIROX [Suspect]
     Active Substance: DEFERASIROX
     Indication: Anaemia macrocytic
     Dosage: 12 MILLIGRAM/KILOGRAM, ONCE A DAY
     Route: 065
  3. DEFERASIROX [Suspect]
     Active Substance: DEFERASIROX
     Indication: Anaemia
     Dosage: 3 MILLIGRAM/KILOGRAM, ONCE A DAY
     Route: 065
  4. DEFERASIROX [Suspect]
     Active Substance: DEFERASIROX
     Indication: Overchelation
     Dosage: 3 MILLIGRAM/KILOGRAM, EVERY OTHER DAY
     Route: 065

REACTIONS (7)
  - Erythropoiesis abnormal [Unknown]
  - Cholestasis [Recovered/Resolved]
  - Haemolysis [Recovered/Resolved]
  - Abdominal discomfort [Recovered/Resolved]
  - Cholelithiasis [Recovered/Resolved]
  - Coombs negative haemolytic anaemia [Recovered/Resolved]
  - Therapeutic response unexpected [Unknown]
